FAERS Safety Report 18492229 (Version 2)
Quarter: 2022Q1

REPORT INFORMATION
  Report Type: Spontaneous
  Country: US (occurrence: US)
  Receive Date: 20201111
  Receipt Date: 20220324
  Transmission Date: 20220423
  Serious: No
  Sender: FDA-Public Use
  Company Number: US-PFIZER INC-2020445310

PATIENT
  Age: 44 Year
  Sex: Male

DRUGS (1)
  1. EUCRISA [Suspect]
     Active Substance: CRISABOROLE
     Indication: Pruritus
     Dosage: UNK, 1X/DAY
     Route: 061

REACTIONS (3)
  - Illness [Unknown]
  - Off label use [Unknown]
  - Off label use [Unknown]
